FAERS Safety Report 25085386 (Version 1)
Quarter: 2025Q1

REPORT INFORMATION
  Report Type: Spontaneous
  Country: US (occurrence: None)
  Receive Date: 20250314
  Receipt Date: 20250314
  Transmission Date: 20250409
  Serious: No
  Sender: FDA-CTU
  Company Number: None

PATIENT
  Age: 49 Year
  Sex: Female

DRUGS (2)
  1. SILDENAFIL [Suspect]
     Active Substance: SILDENAFIL
     Indication: Pulmonary arterial hypertension
     Dosage: FREQUENCY : DAILY;?
     Route: 048
     Dates: start: 20231215, end: 20250211
  2. SILDENAFIL [Concomitant]
     Active Substance: SILDENAFIL
     Dates: start: 20231215, end: 20250211

REACTIONS (5)
  - Headache [None]
  - Feeling abnormal [None]
  - Vasodilatation [None]
  - Fluid retention [None]
  - Ultrasound scan abnormal [None]
